FAERS Safety Report 8793564 (Version 2)
Quarter: 2012Q4

REPORT INFORMATION
  Report Type: 
  Country: US (occurrence: US)
  Receive Date: 20120918
  Receipt Date: 20120926
  Transmission Date: 20130627
  Serious: Yes (Other)
  Sender: FDA-Public Use
  Company Number: PHEH2012US018136

PATIENT
  Sex: Male
  Weight: 81.18 kg

DRUGS (1)
  1. GILENYA [Suspect]
     Indication: MULTIPLE SCLEROSIS
     Dosage: 0.5 mg, QD
     Route: 048
     Dates: start: 201112

REACTIONS (5)
  - Cervicobrachial syndrome [Recovering/Resolving]
  - Nerve compression [Not Recovered/Not Resolved]
  - Pain [Not Recovered/Not Resolved]
  - Hemiparesis [Not Recovered/Not Resolved]
  - Paraesthesia [Not Recovered/Not Resolved]
